FAERS Safety Report 7020014-5 (Version None)
Quarter: 2010Q3

REPORT INFORMATION
  Report Type: 
  Country: None (occurrence: None)
  Receive Date: 20100929
  Receipt Date: 20100916
  Transmission Date: 20110219
  Serious: Yes (Hospitalization)
  Sender: FDA-Public Use
  Company Number: US-CELGENEUS-163-21880-10091595

PATIENT
  Sex: Female

DRUGS (1)
  1. REVLIMID [Suspect]
     Indication: MULTIPLE MYELOMA
     Route: 048
     Dates: start: 20100813, end: 20100829

REACTIONS (4)
  - FATIGUE [None]
  - GRAND MAL CONVULSION [None]
  - KIDNEY INFECTION [None]
  - WHITE BLOOD CELL COUNT DECREASED [None]
